FAERS Safety Report 6200280-6 (Version None)
Quarter: 2009Q2

REPORT INFORMATION
  Report Type: 
  Country: None (occurrence: None)
  Receive Date: 20090518
  Receipt Date: 20090409
  Transmission Date: 20091009
  Serious: No
  Sender: FDA-Public Use
  Company Number: WAES 0904USA01380

PATIENT
  Age: 51 Year
  Sex: Male

DRUGS (5)
  1. JANUVIA [Suspect]
     Indication: TYPE 2 DIABETES MELLITUS
     Dosage: 100 MG/DAILY/PO
     Route: 048
     Dates: start: 20090319
  2. LANTUS [Concomitant]
  3. LOTREL [Concomitant]
  4. PLAVIX [Concomitant]
  5. STARLIX [Concomitant]

REACTIONS (3)
  - HEADACHE [None]
  - NASAL CONGESTION [None]
  - RHINORRHOEA [None]
